FAERS Safety Report 4284493-9 (Version None)
Quarter: 2004Q1

REPORT INFORMATION
  Report Type: 
  Country: None (occurrence: None)
  Receive Date: 20040130
  Receipt Date: 20040121
  Transmission Date: 20041129
  Serious: Yes (Death)
  Sender: FDA-Public Use
  Company Number: 200410476US

PATIENT

DRUGS (1)
  1. DDAVP [Suspect]

REACTIONS (1)
  - MYOCARDIAL INFARCTION [None]
